FAERS Safety Report 8860464 (Version 2)
Quarter: 2013Q4

REPORT INFORMATION
  Report Type: Spontaneous
  Country: US (occurrence: US)
  Receive Date: 20121025
  Receipt Date: 20131101
  Transmission Date: 20140711
  Serious: No
  Sender: FDA-Public Use
  Company Number: US-009507513-1208USA010835

PATIENT
  Age: 61 Year
  Sex: Male

DRUGS (3)
  1. VICTRELIS [Suspect]
     Dosage: 200 MG, 4 CAPS
     Route: 048
  2. CETAPHIL MOISTURIZING CREAM [Concomitant]
  3. ADVIL [Concomitant]
     Dosage: 200 MG, UNK

REACTIONS (1)
  - Dry skin [Unknown]
